FAERS Safety Report 6024565-1 (Version None)
Quarter: 2008Q4

REPORT INFORMATION
  Report Type: 
  Country: None (occurrence: None)
  Receive Date: 20081231
  Receipt Date: 20081120
  Transmission Date: 20090506
  Serious: Yes (Life-Threatening, Other)
  Sender: FDA-Public Use
  Company Number: US-BRISTOL-MYERS SQUIBB COMPANY-14386759

PATIENT
  Age: 7 Year
  Sex: Male

DRUGS (5)
  1. ORENCIA [Suspect]
     Indication: SPONDYLOARTHROPATHY
     Route: 042
     Dates: start: 20080716
  2. REMICADE [Suspect]
     Indication: SPONDYLOARTHROPATHY
     Route: 042
     Dates: start: 20080702
  3. ACETAMINOPHEN [Concomitant]
     Route: 048
  4. BENADRYL [Concomitant]
     Route: 048
  5. FAMOTIDINE [Concomitant]

REACTIONS (2)
  - DYSPNOEA [None]
  - STRIDOR [None]
